FAERS Safety Report 14813043 (Version 1)
Quarter: 2018Q2

REPORT INFORMATION
  Report Type: Report from Study
  Country: None (occurrence: AU)
  Receive Date: 20180426
  Receipt Date: 20180426
  Transmission Date: 20180711
  Serious: Yes (Death, Hospitalization)
  Sender: FDA-Public Use
  Company Number: AU-ABBVIE-18K-008-2333202-00

PATIENT
  Sex: Female

DRUGS (1)
  1. HUMIRA [Suspect]
     Active Substance: ADALIMUMAB
     Indication: RHEUMATOID ARTHRITIS
     Route: 058
     Dates: start: 20180312

REACTIONS (5)
  - Renal impairment [Unknown]
  - Malaise [Unknown]
  - Diarrhoea [Unknown]
  - Death [Fatal]
  - Haematemesis [Unknown]

NARRATIVE: CASE EVENT DATE: 20180312
